FAERS Safety Report 11788128 (Version 4)
Quarter: 2016Q4

REPORT INFORMATION
  Report Type: Report from Study
  Country: CA (occurrence: CA)
  Receive Date: 20151201
  Receipt Date: 20161129
  Transmission Date: 20170206
  Serious: Yes (Other)
  Sender: FDA-Public Use
  Company Number: CA-ROCHE-1513163

PATIENT
  Age: 61 Year
  Sex: Male

DRUGS (3)
  1. PREDNISONE. [Concomitant]
     Active Substance: PREDNISONE
  2. WARFARIN [Suspect]
     Active Substance: WARFARIN
     Indication: PRODUCT USED FOR UNKNOWN INDICATION
     Route: 065
  3. ACTEMRA [Suspect]
     Active Substance: TOCILIZUMAB
     Indication: RHEUMATOID ARTHRITIS
     Route: 058
     Dates: start: 20141111

REACTIONS (20)
  - Peripheral nerve lesion [Unknown]
  - Wrist deformity [Unknown]
  - Vomiting [Recovered/Resolved]
  - Cough [Recovering/Resolving]
  - Gastric disorder [Unknown]
  - Peripheral swelling [Unknown]
  - Bone disorder [Unknown]
  - Arthralgia [Unknown]
  - Drug ineffective [Unknown]
  - Pneumonia [Recovering/Resolving]
  - Sinus congestion [Recovering/Resolving]
  - Influenza [Unknown]
  - Cyst [Unknown]
  - Wheezing [Unknown]
  - Rash macular [Unknown]
  - Rheumatoid arthritis [Unknown]
  - International normalised ratio increased [Unknown]
  - Fatigue [Recovering/Resolving]
  - Upper motor neurone lesion [Unknown]
  - Decreased appetite [Recovering/Resolving]

NARRATIVE: CASE EVENT DATE: 201412
